FAERS Safety Report 10075696 (Version 1)
Quarter: 2014Q1

REPORT INFORMATION
  Report Type: Spontaneous
  Country: US (occurrence: None)
  Receive Date: 20140320
  Receipt Date: 20140320
  Transmission Date: 20141002
  Serious: Yes (Hospitalization)
  Sender: FDA-Public Use
  Company Number: AUR-APL-2014-02315

PATIENT
  Age: 64 Year
  Sex: Male
  Weight: 79.59 kg

DRUGS (15)
  1. HYDROCHLOROTHIAZIDE [Suspect]
     Indication: HYPERTENSION
     Dosage: 1 D
     Route: 048
     Dates: start: 20130709, end: 20131223
  2. TEMSIROLIMUS [Suspect]
     Indication: HEPATOCELLULAR CARCINOMA
     Dosage: 1 IN 1 WK
     Route: 042
     Dates: start: 20130708, end: 20131223
  3. TEMSIROLIMUS [Suspect]
     Dosage: 1 IN 1 WK
     Route: 042
     Dates: start: 20130708, end: 20131223
  4. SPIRONOLACTONE [Suspect]
     Indication: HYPERTENSION
     Dosage: 1 D
     Route: 048
     Dates: start: 201103, end: 20131223
  5. SORAFENIB [Suspect]
     Indication: HEPATOCELLULAR CARCINOMA
     Dosage: 200 MG, 2 IN 1 D
     Route: 048
     Dates: start: 20130708, end: 20131223
  6. SORAFENIB [Suspect]
     Dosage: 200 MG, 2 IN 1 D
     Route: 048
     Dates: start: 20130708, end: 20131223
  7. POTASSIUM SUPPLIMENT [Concomitant]
     Indication: PAIN
  8. POTASSIUM SUPPLIMENT [Concomitant]
     Indication: NAUSEA
  9. VENLAFAXINE [Concomitant]
  10. MOXIFLOXACIN [Concomitant]
  11. OMEPRAZOLE [Concomitant]
  12. METHYLPENIDATE [Concomitant]
  13. AMLODIPINE [Concomitant]
  14. ASCORBIC ACID [Concomitant]
  15. BENAZIPRIL [Concomitant]

REACTIONS (8)
  - Hepatocellular carcinoma [None]
  - Lower gastrointestinal haemorrhage [None]
  - Dehydration [None]
  - Fall [None]
  - Head injury [None]
  - Orthostatic hypotension [None]
  - Renal failure acute [None]
  - Hypovolaemia [None]
